FAERS Safety Report 6896275-X (Version None)
Quarter: 2010Q3

REPORT INFORMATION
  Report Type: 
  Country: None (occurrence: None)
  Receive Date: 20100802
  Receipt Date: 20100726
  Transmission Date: 20110219
  Serious: Yes (Other)
  Sender: FDA-Public Use
  Company Number: B0667011A

PATIENT
  Age: 53 Year
  Sex: Female
  Weight: 74 kg

DRUGS (2)
  1. SUMATRIPTAN SUCCINATE [Suspect]
     Indication: MIGRAINE
     Route: 058
     Dates: start: 20100715, end: 20100715
  2. PROPRANOLOL [Concomitant]
     Indication: MIGRAINE
     Dosage: 160MG PER DAY
     Route: 048
     Dates: start: 20050101

REACTIONS (4)
  - ERYTHEMA [None]
  - INJECTION SITE RASH [None]
  - MUSCLE SPASMS [None]
  - PARAESTHESIA [None]
